FAERS Safety Report 23224981 (Version 2)
Quarter: 2024Q4

REPORT INFORMATION
  Report Type: Spontaneous
  Country: US (occurrence: US)
  Receive Date: 20231124
  Receipt Date: 20241011
  Transmission Date: 20250114
  Serious: No
  Sender: GLAXOSMITHKLINE
  Company Number: US-GSK-US2023158423

PATIENT
  Age: 75 Year
  Sex: Female

DRUGS (5)
  1. ANORO ELLIPTA [Suspect]
     Active Substance: UMECLIDINIUM BROMIDE\VILANTEROL TRIFENATATE
     Indication: Chronic obstructive pulmonary disease
     Dosage: 1 PUFF(S), QD 62.5/25 MCG INHALE
     Dates: start: 20181001
  2. SERTRALINE [Suspect]
     Active Substance: SERTRALINE HYDROCHLORIDE
     Indication: Anxiety
     Dosage: 25 MG, QD
  3. ATORVASTATIN [Suspect]
     Active Substance: ATORVASTATIN
     Indication: Blood cholesterol
     Dosage: 20 MG, QD
  4. XARELTO [Suspect]
     Active Substance: RIVAROXABAN
     Indication: Thrombosis
     Dosage: 20 MG, QD
  5. LEVETIRACETAM [Suspect]
     Active Substance: LEVETIRACETAM
     Indication: Seizure
     Dosage: 500 MG, BID

REACTIONS (3)
  - Dyspnoea [Unknown]
  - Fall [Recovering/Resolving]
  - Head injury [Unknown]

NARRATIVE: CASE EVENT DATE: 20240930
